FAERS Safety Report 4308808-8 (Version None)
Quarter: 2004Q1

REPORT INFORMATION
  Report Type: 
  Country: None (occurrence: None)
  Receive Date: 20040301
  Receipt Date: 20040301
  Transmission Date: 20041129
  Serious: Yes (Life-Threatening, Hospitalization)
  Sender: FDA-Public Use
  Company Number: None

PATIENT
  Age: 43 Year
  Sex: Female
  Weight: 102.9665 kg

DRUGS (5)
  1. DEXAMETHASONE [Suspect]
     Indication: BRAIN CANCER METASTATIC
     Dosage: 4 MG PO QID
     Route: 048
  2. PROTONIX [Concomitant]
  3. MIRALAX [Concomitant]
  4. DIFLUCAN [Concomitant]
  5. GUAIFENESIN [Concomitant]

REACTIONS (6)
  - ASTHENIA [None]
  - BLOOD GLUCOSE INCREASED [None]
  - BLOOD SODIUM DECREASED [None]
  - DEHYDRATION [None]
  - PAIN IN EXTREMITY [None]
  - PCO2 DECREASED [None]
